APPROVED DRUG PRODUCT: XYLOCAINE 1.5% W/ DEXTROSE 7.5%
Active Ingredient: LIDOCAINE HYDROCHLORIDE
Strength: 1.5%
Dosage Form/Route: INJECTABLE;SPINAL
Application: N016297 | Product #001
Applicant: FRESENIUS KABI USA LLC
Approved: Approved Prior to Jan 1, 1982 | RLD: No | RS: No | Type: DISCN